FAERS Safety Report 24544600 (Version 2)
Quarter: 2025Q1

REPORT INFORMATION
  Report Type: Spontaneous
  Country: JP (occurrence: JP)
  Receive Date: 20241024
  Receipt Date: 20250311
  Transmission Date: 20250409
  Serious: Yes (Life-Threatening)
  Sender: BAYER HEALTHCARE PHARMACEUTICALS INC.
  Company Number: JP-BAYER-2024A150182

PATIENT
  Age: 46 Year
  Sex: Female

DRUGS (2)
  1. MIRENA [Suspect]
     Active Substance: LEVONORGESTREL
     Indication: Dysmenorrhoea
     Dosage: 20?G/DAY
     Route: 015
     Dates: start: 20220310
  2. MIRENA [Suspect]
     Active Substance: LEVONORGESTREL
     Indication: Adenomyosis

REACTIONS (10)
  - Shock [Recovered/Resolved]
  - Cardio-respiratory arrest [Recovered/Resolved]
  - Foaming at mouth [Recovered/Resolved]
  - Presyncope [None]
  - Tension [None]
  - Procedural pain [None]
  - Pallor [None]
  - Musculoskeletal stiffness [None]
  - Blood pressure immeasurable [None]
  - Bradycardia [None]

NARRATIVE: CASE EVENT DATE: 20220310
